FAERS Safety Report 18368957 (Version 1)
Quarter: 2020Q4

REPORT INFORMATION
  Report Type: Spontaneous
  Country: US (occurrence: US)
  Receive Date: 20201011
  Receipt Date: 20201011
  Transmission Date: 20210114
  Serious: No
  Sender: FDA-Public Use
  Company Number: US-TEVA-2020-US-1838392

PATIENT
  Age: 80 Year
  Sex: Female
  Weight: 58.51 kg

DRUGS (1)
  1. LIQUID ALBUTEROL [Suspect]
     Active Substance: ALBUTEROL
     Dosage: LIQUID
     Route: 065

REACTIONS (1)
  - Productive cough [Unknown]
